FAERS Safety Report 5014681-5 (Version None)
Quarter: 2006Q2

REPORT INFORMATION
  Report Type: 
  Country: None (occurrence: None)
  Receive Date: 20060531
  Receipt Date: 20060519
  Transmission Date: 20061013
  Serious: Yes (Life-Threatening, Hospitalization)
  Sender: FDA-Public Use
  Company Number: GB-SANOFI-SYNTHELABO-A01200603842

PATIENT
  Age: 85 Year
  Sex: Male
  Weight: 88 kg

DRUGS (5)
  1. GLUCOSAMINE [Concomitant]
     Indication: ARTHRITIS
     Route: 048
     Dates: end: 20060206
  2. LANSOPRAZOLE [Concomitant]
     Indication: GASTROINTESTINAL HAEMORRHAGE
     Route: 048
  3. PARACETAMOL [Concomitant]
     Indication: ANALGESIC EFFECT
     Route: 048
  4. AMLODIPINE [Concomitant]
     Indication: HYPERTENSION
     Route: 048
  5. PLAVIX [Suspect]
     Indication: ANTIPLATELET THERAPY
     Route: 048
     Dates: end: 20060201

REACTIONS (2)
  - BARRETT'S OESOPHAGUS [None]
  - HAEMATEMESIS [None]
